FAERS Safety Report 8407594-X (Version None)
Quarter: 2012Q2

REPORT INFORMATION
  Report Type: 
  Country: None (occurrence: None)
  Receive Date: 20120604
  Receipt Date: 20120524
  Transmission Date: 20120825
  Serious: Yes (Hospitalization)
  Sender: FDA-Public Use
  Company Number: US-US-EMD SERONO, INC.-7135677

PATIENT
  Sex: Female

DRUGS (1)
  1. REBIF [Suspect]
     Indication: PRODUCT USED FOR UNKNOWN INDICATION
     Route: 058
     Dates: start: 20111004

REACTIONS (8)
  - PLEURISY [None]
  - GAIT DISTURBANCE [None]
  - FALL [None]
  - INJECTION SITE PAIN [None]
  - CHILLS [None]
  - FATIGUE [None]
  - DIPLOPIA [None]
  - PYREXIA [None]
